FAERS Safety Report 5865954-5 (Version None)
Quarter: 2008Q3

REPORT INFORMATION
  Report Type: 
  Country: None (occurrence: None)
  Receive Date: 20080829
  Receipt Date: 20080819
  Transmission Date: 20090109
  Serious: Yes (Disabling, Other)
  Sender: FDA-Public Use
  Company Number: US-PFIZER INC-2008041788

PATIENT
  Sex: Female

DRUGS (3)
  1. NEURONTIN [Suspect]
  2. LYRICA [Suspect]
     Indication: NEUROPATHY PERIPHERAL
  3. ALL OTHER THERAPEUTIC PRODUCTS [Concomitant]

REACTIONS (21)
  - ACTIVITIES OF DAILY LIVING IMPAIRED [None]
  - ADVERSE DRUG REACTION [None]
  - ARTHRALGIA [None]
  - ASTHENIA [None]
  - CHEST PAIN [None]
  - CRYING [None]
  - DRUG HYPERSENSITIVITY [None]
  - GAIT DISTURBANCE [None]
  - HYPERTENSION [None]
  - ILL-DEFINED DISORDER [None]
  - INFLUENZA [None]
  - LYMPHOEDEMA [None]
  - MALAISE [None]
  - MUSCLE SPASMS [None]
  - MYALGIA [None]
  - NEOPLASM MALIGNANT [None]
  - OEDEMA PERIPHERAL [None]
  - PAIN [None]
  - PAIN IN EXTREMITY [None]
  - PYREXIA [None]
  - WEIGHT INCREASED [None]
